FAERS Safety Report 17594343 (Version 2)
Quarter: 2020Q2

REPORT INFORMATION
  Report Type: Report from Study
  Country: TR (occurrence: TR)
  Receive Date: 20200327
  Receipt Date: 20200402
  Transmission Date: 20200713
  Serious: Yes (Death, Other)
  Sender: FDA-Public Use
  Company Number: TR-SA-2020SA077471

PATIENT
  Age: 20 Month
  Sex: Female
  Weight: 9.1 kg

DRUGS (2)
  1. ALEMTUZUMAB [Suspect]
     Active Substance: ALEMTUZUMAB
     Indication: COMBINED IMMUNODEFICIENCY
     Dosage: 0.2 MG/KG/DOSE, TOTAL 1 MG/KG
     Route: 065
     Dates: start: 20200220, end: 20200224
  2. ALEMTUZUMAB [Suspect]
     Active Substance: ALEMTUZUMAB
     Indication: STEM CELL TRANSPLANT

REACTIONS (8)
  - Off label use [Unknown]
  - Neutropenia [Recovering/Resolving]
  - Rash [Recovered/Resolved]
  - Pancytopenia [Unknown]
  - Acute respiratory distress syndrome [Fatal]
  - Pneumonia [Fatal]
  - Cytopenia [Unknown]
  - Hyperaemia [Unknown]

NARRATIVE: CASE EVENT DATE: 20200220
